FAERS Safety Report 4840838-X (Version None)
Quarter: 2005Q4

REPORT INFORMATION
  Report Type: 
  Country: None (occurrence: None)
  Receive Date: 20051130
  Receipt Date: 20050629
  Transmission Date: 20060501
  Serious: No
  Sender: FDA-Public Use
  Company Number: US-BRISTOL-MYERS SQUIBB COMPANY-13022074

PATIENT
  Sex: Male

DRUGS (1)
  1. AVALIDE [Suspect]
     Dosage: 2 SOURCES: 1 FROM VA + ANOTHER FROM SAMPLES FROM THE DOCTOR
     Route: 048

REACTIONS (2)
  - BLOOD PRESSURE INCREASED [None]
  - THERAPEUTIC RESPONSE DECREASED [None]
